FAERS Safety Report 7657670-4 (Version None)
Quarter: 2011Q3

REPORT INFORMATION
  Report Type: 
  Country: None (occurrence: None)
  Receive Date: 20110804
  Receipt Date: 20110725
  Transmission Date: 20111222
  Serious: Yes (Death, Hospitalization, Other)
  Sender: FDA-Public Use
  Company Number: US-MERCK-0802USA06195

PATIENT
  Age: 75 Year
  Sex: Female

DRUGS (3)
  1. FOSAMAX [Suspect]
     Route: 048
     Dates: start: 19970101, end: 20010801
  2. SYNTHROID [Concomitant]
     Indication: HYPOTHYROIDISM
     Route: 065
     Dates: start: 19890101, end: 20060101
  3. FOSAMAX [Suspect]
     Route: 048
     Dates: start: 20010901, end: 20060523

REACTIONS (59)
  - ATRIAL FIBRILLATION [None]
  - URINARY TRACT INFECTION [None]
  - RADICULOPATHY [None]
  - PERIPHERAL ARTERIAL OCCLUSIVE DISEASE [None]
  - BURSITIS [None]
  - OEDEMA MOUTH [None]
  - DRUG INEFFECTIVE [None]
  - EJECTION FRACTION DECREASED [None]
  - ARTHRALGIA [None]
  - HAEMORRHAGIC ANAEMIA [None]
  - HYPONATRAEMIA [None]
  - RIB FRACTURE [None]
  - TOOTH DISORDER [None]
  - NOCTURIA [None]
  - LOWER LIMB FRACTURE [None]
  - ANKLE FRACTURE [None]
  - EPISTAXIS [None]
  - ASTHENIA [None]
  - PAIN IN JAW [None]
  - PAIN [None]
  - WRIST FRACTURE [None]
  - CONSTIPATION [None]
  - COMPRESSION FRACTURE [None]
  - OSTEOMYELITIS [None]
  - TIBIA FRACTURE [None]
  - HYPOKALAEMIA [None]
  - ADVERSE DRUG REACTION [None]
  - HYPERTONIC BLADDER [None]
  - OSTEOPENIA [None]
  - FALL [None]
  - DRY MOUTH [None]
  - OSTEONECROSIS OF JAW [None]
  - PULMONARY OEDEMA [None]
  - DEPRESSION [None]
  - SPINAL COMPRESSION FRACTURE [None]
  - FOOT FRACTURE [None]
  - OSTEOARTHRITIS [None]
  - CAROTID ARTERY DISEASE [None]
  - ANAEMIA OF CHRONIC DISEASE [None]
  - CELLULITIS [None]
  - COAGULOPATHY [None]
  - LOBAR PNEUMONIA [None]
  - SEPSIS [None]
  - RESPIRATORY FAILURE [None]
  - PLEURAL EFFUSION [None]
  - CARDIAC FAILURE CONGESTIVE [None]
  - HYPERLIPIDAEMIA [None]
  - FIBULA FRACTURE [None]
  - DYSPEPSIA [None]
  - ORAL PAIN [None]
  - ORAL INFECTION [None]
  - NEUROPATHY PERIPHERAL [None]
  - HAEMATURIA [None]
  - BLADDER DISORDER [None]
  - BRONCHITIS [None]
  - HYPOXIA [None]
  - UPPER LIMB FRACTURE [None]
  - GINGIVAL BLEEDING [None]
  - SUBCUTANEOUS ABSCESS [None]
